FAERS Safety Report 9352290 (Version 1)
Quarter: 2013Q2

REPORT INFORMATION
  Report Type: Report from Study
  Country: DE (occurrence: DE)
  Receive Date: 20130617
  Receipt Date: 20130617
  Transmission Date: 20140414
  Serious: Yes (Other)
  Sender: FDA-Public Use
  Company Number: DE-BAYER-2013-071068

PATIENT
  Age: 44 Year
  Sex: Male

DRUGS (2)
  1. ASPIRIN 100 [Suspect]
     Indication: CARDIOVASCULAR EVENT PROPHYLAXIS
     Dosage: DAILY DOSE 100 MG
  2. ACETAZOLAMIDE [Concomitant]
     Dosage: 15 MG/KG, UNK

REACTIONS (1)
  - Drug resistance [Recovered/Resolved]
